FAERS Safety Report 4838137-5 (Version None)
Quarter: 2005Q4

REPORT INFORMATION
  Report Type: 
  Country: None (occurrence: None)
  Receive Date: 20051123
  Receipt Date: 20051123
  Transmission Date: 20060501
  Serious: Yes (Life-Threatening, Hospitalization)
  Sender: FDA-Public Use
  Company Number: None

PATIENT
  Age: 36 Year
  Sex: Male

DRUGS (5)
  1. LEVOFLOXACIN [Suspect]
     Indication: URINARY TRACT INFECTION
     Dosage: 250 MG PO QD
     Route: 048
     Dates: start: 20050521, end: 20050522
  2. BACLOFEN [Concomitant]
  3. SSI [Concomitant]
  4. OXYBUTININ [Concomitant]
  5. LANSOPRAZOLE [Concomitant]

REACTIONS (1)
  - CONVULSION [None]
